FAERS Safety Report 21098319 (Version 1)
Quarter: 2022Q3

REPORT INFORMATION
  Report Type: Spontaneous
  Country: US (occurrence: None)
  Receive Date: 20220718
  Receipt Date: 20220718
  Transmission Date: 20221026
  Serious: No
  Sender: FDA-Public Use
  Company Number: None

PATIENT
  Age: 76 Year
  Sex: Female

DRUGS (20)
  1. ONDANSETRON [Suspect]
     Active Substance: ONDANSETRON
     Indication: Breast cancer
     Dosage: OTHER FREQUENCY : Q8HOURS;?
     Route: 048
     Dates: start: 202201
  2. KISQALI [Suspect]
     Active Substance: RIBOCICLIB
     Indication: Breast cancer
     Dosage: OTHER FREQUENCY : 3W, 1W OFF;?
     Route: 048
     Dates: start: 202201
  3. AMLODIPINE BESYLATE [Concomitant]
     Active Substance: AMLODIPINE BESYLATE
  4. ARIMIDEX [Concomitant]
  5. CYANOCOBALAMIN [Concomitant]
  6. DONEPEZIL HCI [Concomitant]
  7. FLUOXETINE HCI [Concomitant]
  8. IMODIUM [Concomitant]
  9. MULTI-SYMPTOM RELIEF [Concomitant]
  10. IPRATROPIUM-ALBUTEROL INHALATION [Concomitant]
  11. LAMOTRIGINE [Concomitant]
  12. LASIX [Concomitant]
     Active Substance: FUROSEMIDE
  13. METOPROLOL [Concomitant]
  14. OXYBUTYNIN CHLORIDE [Concomitant]
     Active Substance: OXYBUTYNIN CHLORIDE
  15. PANTOPRAZOLE SODIUM [Concomitant]
  16. TOLTERODINE TARTRATE [Concomitant]
  17. TRAZODONE [Concomitant]
  18. XGEVA [Concomitant]
  19. ZUPLENZ [Concomitant]
     Active Substance: ONDANSETRON
  20. LOPRESSOR [Concomitant]

REACTIONS (1)
  - Pneumonia legionella [None]
